FAERS Safety Report 16455301 (Version 1)
Quarter: 2019Q2

REPORT INFORMATION
  Report Type: Spontaneous
  Country: US (occurrence: US)
  Receive Date: 20190619
  Receipt Date: 20190619
  Transmission Date: 20190711
  Serious: No
  Sender: FDA-Public Use
  Company Number: US-ROCHE-2131275

PATIENT
  Age: 59 Year
  Sex: Female

DRUGS (2)
  1. ACTEMRA [Suspect]
     Active Substance: TOCILIZUMAB
     Route: 058
     Dates: start: 20180626
  2. ACTEMRA [Suspect]
     Active Substance: TOCILIZUMAB
     Indication: RHEUMATOID ARTHRITIS
     Dosage: 1 SYRINGE; CURRENT?162MG/0.9ML; INJECTION
     Route: 058
     Dates: start: 20180425

REACTIONS (3)
  - Ageusia [Unknown]
  - Syringe issue [Unknown]
  - Anosmia [Unknown]

NARRATIVE: CASE EVENT DATE: 20180425
